FAERS Safety Report 9817099 (Version 1)
Quarter: 2014Q1

REPORT INFORMATION
  Report Type: Report from Study
  Country: BR (occurrence: BR)
  Receive Date: 20140114
  Receipt Date: 20140114
  Transmission Date: 20141002
  Serious: Yes (Other)
  Sender: FDA-Public Use
  Company Number: PHHY2014BR002067

PATIENT
  Sex: Female
  Weight: 64 kg

DRUGS (4)
  1. TEGRETOL [Suspect]
     Indication: EPILEPSY
     Dosage: 0.5 DF, QD (100 MG TABLET)
     Route: 048
  2. TEGRETOL [Suspect]
     Dosage: 0.25 DF, QD (200 MG TABLET)
     Route: 048
     Dates: start: 2013
  3. ALPRAZOLAM [Suspect]
     Indication: SLEEP DISORDER
     Dosage: 2 MG, QD ONCE A DAY
     Route: 048
  4. RIVOTRIL [Concomitant]
     Indication: SLEEP DISORDER
     Dosage: 2 MG, QD ONCE A DAY
     Route: 048

REACTIONS (7)
  - Diabetes mellitus [Not Recovered/Not Resolved]
  - Epilepsy [Recovered/Resolved]
  - Eye injury [Recovered/Resolved]
  - Injury [Recovered/Resolved]
  - Fall [Recovered/Resolved]
  - Pain [Recovered/Resolved]
  - Wrong technique in drug usage process [Unknown]
